FAERS Safety Report 6841908-7 (Version None)
Quarter: 2010Q3

REPORT INFORMATION
  Report Type: 
  Country: None (occurrence: None)
  Receive Date: 20100709
  Receipt Date: 20100628
  Transmission Date: 20110219
  Serious: Yes (Other)
  Sender: FDA-Public Use
  Company Number: TRP_07074_2010

PATIENT
  Age: 63 Year
  Sex: Female

DRUGS (11)
  1. RIBAVIRIN [Suspect]
     Indication: HEPATITIS C
     Dosage: DF
     Dates: start: 20020501, end: 20020701
  2. REBETOL [Suspect]
     Indication: CYTOLYTIC HEPATITIS
     Dosage: 1 G QD
     Dates: start: 19980501, end: 19990101
  3. FERROUS SULFATE TAB [Suspect]
     Indication: ANAEMIA PROPHYLAXIS
     Dosage: 80 MG QD
     Dates: start: 19980501, end: 19981101
  4. PEGINTERFERON ALFA-2B [Suspect]
     Indication: HEPATITIS C
     Dosage: DF
     Dates: start: 20010301, end: 20011201
  5. PEGINTERFERON ALFA-2B [Suspect]
     Indication: HEPATITIS C
     Dosage: DF
     Dates: start: 20020501, end: 20020701
  6. SPECIAFOLDINE [Concomitant]
  7. PROPRANOLOL [Concomitant]
  8. INTRON A [Concomitant]
  9. BETA BLOCKING AGENTS [Concomitant]
  10. URSODIOL [Concomitant]
  11. AMANTADINE HCL [Concomitant]

REACTIONS (13)
  - ALANINE AMINOTRANSFERASE INCREASED [None]
  - ANAEMIA [None]
  - ASPARTATE AMINOTRANSFERASE INCREASED [None]
  - BLOOD BILIRUBIN INCREASED [None]
  - CYTOLYTIC HEPATITIS [None]
  - HEPATIC ENCEPHALOPATHY [None]
  - HEPATOMEGALY [None]
  - IRON OVERLOAD [None]
  - PERITONITIS BACTERIAL [None]
  - RASH [None]
  - SERUM FERRITIN INCREASED [None]
  - SPLENOMEGALY [None]
  - VARICES OESOPHAGEAL [None]
